FAERS Safety Report 8277686-7 (Version None)
Quarter: 2012Q2

REPORT INFORMATION
  Report Type: 
  Country: None (occurrence: None)
  Receive Date: 20120412
  Receipt Date: 20120406
  Transmission Date: 20120825
  Serious: Yes (Hospitalization)
  Sender: FDA-Public Use
  Company Number: FR-PFIZER INC-2012054991

PATIENT
  Age: 70 Year
  Sex: Female

DRUGS (7)
  1. OMEPRAZOLE [Concomitant]
     Dosage: UNK
     Dates: end: 20111206
  2. EFFIENT [Concomitant]
     Dosage: UNK
     Dates: start: 20111130
  3. ASPIRIN [Concomitant]
     Dosage: UNK
     Dates: start: 20111130
  4. RAMIPRIL [Suspect]
     Indication: ACUTE CORONARY SYNDROME
     Dosage: 2.5 MG DAILY
     Route: 048
     Dates: start: 20111130, end: 20111202
  5. BISOPROLOL FUMARATE [Suspect]
     Indication: ACUTE CORONARY SYNDROME
     Dosage: 2.5 MG DAILY
     Route: 048
     Dates: start: 20111130, end: 20111206
  6. CADUET [Concomitant]
     Dosage: UNK
     Dates: end: 20111130
  7. ATORVASTATIN [Concomitant]
     Dosage: UNK
     Dates: start: 20111130, end: 20111202

REACTIONS (1)
  - SKIN REACTION [None]
